FAERS Safety Report 22590128 (Version 1)
Quarter: 2023Q2

REPORT INFORMATION
  Report Type: Spontaneous
  Country: CN (occurrence: CN)
  Receive Date: 20230612
  Receipt Date: 20230612
  Transmission Date: 20230722
  Serious: Yes (Hospitalization, Other)
  Sender: FDA-Public Use
  Company Number: CN-009507513-2306CHN003930

PATIENT
  Age: 74 Year
  Sex: Male
  Weight: 55 kg

DRUGS (5)
  1. CILASTATIN SODIUM\IMIPENEM [Suspect]
     Active Substance: CILASTATIN SODIUM\IMIPENEM
     Indication: Pneumonia
     Dosage: 500 MG, Q6H
     Route: 041
     Dates: start: 20230429, end: 20230513
  2. ISONIAZID [Suspect]
     Active Substance: ISONIAZID
     Indication: Pulmonary tuberculosis
     Dosage: 300 MG, QD
     Route: 048
     Dates: start: 20230422, end: 20230513
  3. RIFAPENTINE [Concomitant]
     Active Substance: RIFAPENTINE
     Indication: Pulmonary tuberculosis
     Dosage: 0.6 G, BIW (ALSO REPORTED AS TIW, CONFLICTING INFORMATION IN THE ORIGINAL AGENCY REPORT)
     Route: 048
     Dates: start: 20230422, end: 20230524
  4. ETHAMBUTOL HYDROCHLORIDE [Concomitant]
     Active Substance: ETHAMBUTOL HYDROCHLORIDE
     Indication: Pulmonary tuberculosis
     Dosage: 0.75 G, QD
     Route: 048
     Dates: start: 20230422, end: 20230524
  5. AVELOX [Concomitant]
     Active Substance: MOXIFLOXACIN HYDROCHLORIDE
     Indication: Pulmonary tuberculosis
     Dosage: 250 ML,QD
     Route: 041
     Dates: start: 20230422, end: 20230426

REACTIONS (1)
  - Epilepsy [Recovering/Resolving]

NARRATIVE: CASE EVENT DATE: 20230512
